FAERS Safety Report 7321914-9 (Version None)
Quarter: 2011Q1

REPORT INFORMATION
  Report Type: 
  Country: None (occurrence: None)
  Receive Date: 20110228
  Receipt Date: 20110214
  Transmission Date: 20110831
  Serious: Yes (Death, Hospitalization)
  Sender: FDA-Public Use
  Company Number: JP-CELGENEUS-087-21880-11011899

PATIENT
  Sex: Male
  Weight: 48 kg

DRUGS (8)
  1. LENADEX [Suspect]
     Route: 048
     Dates: start: 20101223, end: 20101226
  2. REVLIMID [Suspect]
     Indication: MULTIPLE MYELOMA
     Route: 048
     Dates: start: 20100915, end: 20101003
  3. LENADEX [Suspect]
     Indication: MULTIPLE MYELOMA
     Route: 048
     Dates: start: 20100915, end: 20101002
  4. LENADEX [Suspect]
     Route: 048
     Dates: start: 20101021, end: 20101024
  5. LENADEX [Suspect]
     Route: 048
     Dates: start: 20101215, end: 20101218
  6. REVLIMID [Suspect]
     Route: 048
     Dates: start: 20101215, end: 20101229
  7. REVLIMID [Suspect]
     Route: 048
     Dates: start: 20101021, end: 20101109
  8. LENADEX [Suspect]
     Route: 048
     Dates: start: 20101031, end: 20101103

REACTIONS (6)
  - THIRST [None]
  - CONSTIPATION [None]
  - DIARRHOEA [None]
  - PLATELET COUNT DECREASED [None]
  - ANGIOPATHY [None]
  - FEMORAL NECK FRACTURE [None]
